FAERS Safety Report 24114524 (Version 1)
Quarter: 2024Q3

REPORT INFORMATION
  Report Type: Spontaneous
  Country: US (occurrence: US)
  Receive Date: 20240720
  Receipt Date: 20240720
  Transmission Date: 20241017
  Serious: No
  Sender: UROGEN PHARMA
  Company Number: US-UROGEN PHARMA LTD.-2024-UGN-000069

PATIENT

DRUGS (10)
  1. JELMYTO [Suspect]
     Active Substance: MITOMYCIN
     Indication: Transitional cell cancer of the renal pelvis and ureter
     Dosage: UNK, ONCE A WEEK, (INSTILLATION)
     Dates: start: 20240131, end: 20240131
  2. JELMYTO [Suspect]
     Active Substance: MITOMYCIN
     Dosage: UNK, ONCE A WEEK, (INSTILLATION)
     Dates: start: 20240207, end: 20240207
  3. JELMYTO [Suspect]
     Active Substance: MITOMYCIN
     Dosage: UNK, ONCE A WEEK, (INSTILLATION)
     Dates: start: 20240214, end: 20240214
  4. JELMYTO [Suspect]
     Active Substance: MITOMYCIN
     Dosage: UNK, ONCE A WEEK, (INSTILLATION)
     Dates: start: 20240221, end: 20240221
  5. JELMYTO [Suspect]
     Active Substance: MITOMYCIN
     Dosage: UNK, ONCE A WEEK, (INSTILLATION)
     Dates: start: 20240228, end: 20240228
  6. JELMYTO [Suspect]
     Active Substance: MITOMYCIN
     Dosage: UNK, ONCE A WEEK, (1ST TREATMENT 6TH DOSE INSTILLATION)
     Dates: start: 2024, end: 2024
  7. JELMYTO [Suspect]
     Active Substance: MITOMYCIN
     Dosage: 60 MILLIGRAM PER 6 MILLILITER, (INSTILLATION)
     Dates: start: 20240515, end: 20240515
  8. JELMYTO [Suspect]
     Active Substance: MITOMYCIN
     Dosage: 60 MILLIGRAM PER 6 MILLILITER, (INSTILLATION) ,(INSTILLATION)
     Dates: start: 20240522, end: 20240522
  9. JELMYTO [Suspect]
     Active Substance: MITOMYCIN
     Dosage: 60 MILLIGRAM PER 6 MILLILITER, (INSTILLATION) , (INSTILLATION)
     Dates: start: 20240529, end: 20240529
  10. JELMYTO [Suspect]
     Active Substance: MITOMYCIN
     Dosage: 60 MILLIGRAM PER 6 MILLILITER, (INSTILLATION) , (INSTILLATION)
     Dates: start: 20240605, end: 20240605

REACTIONS (16)
  - Abdominal pain lower [Unknown]
  - Abdominal pain lower [Unknown]
  - Abdominal pain lower [Unknown]
  - Abdominal pain lower [Unknown]
  - Flank pain [Unknown]
  - Flank pain [Unknown]
  - Flank pain [Unknown]
  - Flank pain [Unknown]
  - Asthenia [Unknown]
  - Asthenia [Unknown]
  - Asthenia [Unknown]
  - Asthenia [Unknown]
  - Fatigue [Unknown]
  - Fatigue [Unknown]
  - Fatigue [Unknown]
  - Fatigue [Unknown]

NARRATIVE: CASE EVENT DATE: 20240515
